FAERS Safety Report 20085014 (Version 1)
Quarter: 2021Q4

REPORT INFORMATION
  Report Type: Spontaneous
  Country: US (occurrence: US)
  Receive Date: 20211118
  Receipt Date: 20211118
  Transmission Date: 20220303
  Serious: Yes (Other)
  Sender: FDA-Public Use
  Company Number: US-AVET LIFESCIENCES LTD-2021-AVET-000057

PATIENT
  Age: 38 Year
  Sex: Male

DRUGS (2)
  1. TEMOZOLOMIDE [Suspect]
     Active Substance: TEMOZOLOMIDE
     Indication: Pineal parenchymal neoplasm malignant
     Dosage: 200 MG/M2 WITH 5 DAYS ON AND 23 DAYS OFF
     Route: 048
  2. TEMOZOLOMIDE [Suspect]
     Active Substance: TEMOZOLOMIDE
     Dosage: 150 MG/M2 FOR 5 DAYS ON AND 23 DAYS OFF FOR 10 ADDITIONAL CYCLES

REACTIONS (4)
  - Thrombocytopenia [Recovered/Resolved]
  - Fatigue [Unknown]
  - Hypothalamo-pituitary disorder [Unknown]
  - Diplopia [Not Recovered/Not Resolved]

NARRATIVE: CASE EVENT DATE: 20191201
